FAERS Safety Report 10613208 (Version 20)
Quarter: 2016Q4

REPORT INFORMATION
  Report Type: Report from Study
  Country: CA (occurrence: CA)
  Receive Date: 20141128
  Receipt Date: 20161226
  Transmission Date: 20170206
  Serious: Yes (Hospitalization, Other)
  Sender: FDA-Public Use
  Company Number: CA-ROCHE-1147324

PATIENT
  Age: 70 Year
  Sex: Female
  Weight: 63 kg

DRUGS (9)
  1. HYDROMORPHONE [Concomitant]
     Active Substance: HYDROMORPHONE
  2. PREDNISONE. [Concomitant]
     Active Substance: PREDNISONE
  3. ACTEMRA [Suspect]
     Active Substance: TOCILIZUMAB
     Indication: RHEUMATOID ARTHRITIS
     Route: 042
     Dates: start: 20120919
  4. DILAUDID [Concomitant]
     Active Substance: HYDROMORPHONE HYDROCHLORIDE
  5. RITUXAN [Suspect]
     Active Substance: RITUXIMAB
     Indication: RHEUMATOID ARTHRITIS
     Route: 042
     Dates: start: 20110119, end: 20110430
  6. OMEGA 3 [Concomitant]
     Active Substance: OMEGA-3 FATTY ACIDS
  7. VITAMIN C [Concomitant]
     Active Substance: ASCORBIC ACID
  8. IBUPROFEN. [Concomitant]
     Active Substance: IBUPROFEN
  9. ACTEMRA [Suspect]
     Active Substance: TOCILIZUMAB
     Route: 042
     Dates: start: 20130613

REACTIONS (25)
  - Herpes zoster [Not Recovered/Not Resolved]
  - Oral herpes [Unknown]
  - Blood pressure diastolic decreased [Unknown]
  - Bronchitis [Recovered/Resolved]
  - Contusion [Not Recovered/Not Resolved]
  - Joint range of motion decreased [Not Recovered/Not Resolved]
  - Tooth infection [Recovered/Resolved]
  - Pharyngitis streptococcal [Unknown]
  - Blood pressure diastolic increased [Unknown]
  - Nasopharyngitis [Not Recovered/Not Resolved]
  - Blood pressure increased [Unknown]
  - Musculoskeletal pain [Not Recovered/Not Resolved]
  - Weight decreased [Not Recovered/Not Resolved]
  - Hypotension [Unknown]
  - Infusion related reaction [Unknown]
  - Blood pressure systolic increased [Unknown]
  - Infected bite [Not Recovered/Not Resolved]
  - Cataract [Unknown]
  - Rheumatoid arthritis [Not Recovered/Not Resolved]
  - Burning sensation [Not Recovered/Not Resolved]
  - Pneumonia [Unknown]
  - Pruritus [Not Recovered/Not Resolved]
  - Blood pressure diastolic decreased [Unknown]
  - Mass [Not Recovered/Not Resolved]
  - Urticaria [Not Recovered/Not Resolved]

NARRATIVE: CASE EVENT DATE: 2012
